FAERS Safety Report 13186704 (Version 1)
Quarter: 2017Q1

REPORT INFORMATION
  Report Type: Spontaneous
  Country: US (occurrence: US)
  Receive Date: 20170205
  Receipt Date: 20170205
  Transmission Date: 20170428
  Serious: Yes (Other)
  Sender: FDA-Public Use
  Company Number: US-SUCAMPO PHARMACEUTICALS INC.-SPI201700158

PATIENT

DRUGS (2)
  1. AMITIZA [Suspect]
     Active Substance: LUBIPROSTONE
     Dosage: 24 MCG IN AM
     Route: 048
     Dates: start: 20170129, end: 20170129
  2. AMITIZA [Suspect]
     Active Substance: LUBIPROSTONE
     Indication: CONSTIPATION
     Dosage: 24 MCG, BID
     Route: 048
     Dates: start: 20170128, end: 20170128

REACTIONS (7)
  - Abasia [Unknown]
  - Malaise [Unknown]
  - Myalgia [Unknown]
  - Flatulence [Not Recovered/Not Resolved]
  - Chromaturia [Recovered/Resolved]
  - Drug ineffective [Not Recovered/Not Resolved]
  - Abdominal pain [Unknown]

NARRATIVE: CASE EVENT DATE: 20170128
